FAERS Safety Report 8035977-9 (Version None)
Quarter: 2012Q1

REPORT INFORMATION
  Report Type: 
  Country: None (occurrence: None)
  Receive Date: 20120106
  Receipt Date: 20111227
  Transmission Date: 20120608
  Serious: Yes (Other)
  Sender: FDA-Public Use
  Company Number: 2010SP032661

PATIENT
  Age: 26 Year
  Sex: Female
  Weight: 51 kg

DRUGS (2)
  1. GRACIAL (DESOGESTREL/ETHINYLESTRADIOL) [Suspect]
     Indication: CONTRACEPTION
     Dosage: ;QD;PO
     Route: 048
     Dates: start: 20050101
  2. UNSPECIFIED EMERGENCY CONTRACEPTIVE PILL [Concomitant]

REACTIONS (8)
  - VOMITING [None]
  - INAPPROPRIATE SCHEDULE OF DRUG ADMINISTRATION [None]
  - FALL [None]
  - WITHDRAWAL BLEED [None]
  - FRACTURED COCCYX [None]
  - HAIR DISORDER [None]
  - GASTRITIS [None]
  - DRUG DOSE OMISSION [None]
